FAERS Safety Report 4949015-5 (Version None)
Quarter: 2006Q1

REPORT INFORMATION
  Report Type: 
  Country: None (occurrence: None)
  Receive Date: 20060321
  Receipt Date: 20060310
  Transmission Date: 20060701
  Serious: Yes (Hospitalization)
  Sender: FDA-Public Use
  Company Number: 2006PK00514

PATIENT
  Sex: Female

DRUGS (1)
  1. BELOC ZOK [Suspect]

REACTIONS (2)
  - GUILLAIN-BARRE SYNDROME [None]
  - HEADACHE [None]
